FAERS Safety Report 6719523-5 (Version None)
Quarter: 2010Q2

REPORT INFORMATION
  Report Type: 
  Country: None (occurrence: None)
  Receive Date: 20100511
  Receipt Date: 20100503
  Transmission Date: 20101027
  Serious: Yes (Hospitalization)
  Sender: FDA-Public Use
  Company Number: FR-ROCHE-700964

PATIENT
  Sex: Female

DRUGS (5)
  1. CELLCEPT [Suspect]
     Route: 048
     Dates: start: 20090801, end: 20100325
  2. ADVAGRAF [Suspect]
     Route: 048
     Dates: start: 20090801, end: 20100325
  3. ADVAGRAF [Suspect]
     Dosage: REDUCED DOSE
     Route: 048
  4. SOLUPRED [Suspect]
     Route: 048
     Dates: start: 20090801, end: 20100325
  5. SOLUPRED [Suspect]
     Route: 048
     Dates: start: 20100405

REACTIONS (2)
  - NEPHROPATHY [None]
  - VIRAL INFECTION [None]
